FAERS Safety Report 4982147-4 (Version None)
Quarter: 2006Q2

REPORT INFORMATION
  Report Type: 
  Country: None (occurrence: None)
  Receive Date: 20060425
  Receipt Date: 20051109
  Transmission Date: 20061013
  Serious: Yes (Hospitalization)
  Sender: FDA-Public Use
  Company Number: US-MERCK-0511USA01666

PATIENT
  Age: 61 Year
  Sex: Female
  Weight: 115 kg

DRUGS (9)
  1. VIOXX [Suspect]
     Indication: ARTHRITIS
     Route: 048
     Dates: start: 20010222, end: 20021130
  2. VIOXX [Suspect]
     Route: 048
     Dates: start: 20010222, end: 20021130
  3. TYLENOL (CAPLET) [Concomitant]
     Route: 065
  4. MONOPRIL [Concomitant]
     Route: 048
  5. GLUCOVANCE [Concomitant]
     Route: 048
  6. NORVASC [Concomitant]
     Route: 048
  7. INSULIN [Concomitant]
     Route: 030
  8. INSULIN [Concomitant]
     Route: 030
  9. LIPITOR [Concomitant]
     Route: 048
     Dates: end: 20021001

REACTIONS (17)
  - ANGINA PECTORIS [None]
  - ARTHRALGIA [None]
  - ASPARTATE AMINOTRANSFERASE INCREASED [None]
  - CARDIOMEGALY [None]
  - CHEST DISCOMFORT [None]
  - CORONARY ARTERY DISEASE [None]
  - DYSPNOEA [None]
  - FATIGUE [None]
  - HEADACHE [None]
  - HYPOGLYCAEMIA [None]
  - LUNG DISORDER [None]
  - MYOCARDIAL INFARCTION [None]
  - PNEUMONIA [None]
  - PYELONEPHRITIS [None]
  - SKIN ULCER [None]
  - TEMPORAL ARTERITIS [None]
  - VENTRICULAR TACHYCARDIA [None]
